FAERS Safety Report 23673412 (Version 1)
Quarter: 2024Q1

REPORT INFORMATION
  Report Type: Spontaneous
  Country: CN (occurrence: CN)
  Receive Date: 20240326
  Receipt Date: 20240326
  Transmission Date: 20240409
  Serious: Yes (Life-Threatening)
  Sender: FDA-Public Use
  Company Number: CN-BAYER-2024A044475

PATIENT
  Age: 45 Year
  Sex: Female
  Weight: 55 kg

DRUGS (2)
  1. ULTRAVIST [Suspect]
     Active Substance: IOPROMIDE
     Indication: Computerised tomogram
     Dosage: 80 ML, ONCE
     Route: 042
     Dates: start: 20240226, end: 20240226
  2. ULTRAVIST [Suspect]
     Active Substance: IOPROMIDE
     Indication: Haemangioma of liver

REACTIONS (7)
  - Pallor [Recovering/Resolving]
  - Dizziness [Recovered/Resolved]
  - Chest discomfort [Recovering/Resolving]
  - Tachypnoea [Recovered/Resolved]
  - Flushing [None]
  - Cyanosis [Recovering/Resolving]
  - Coma [Recovering/Resolving]

NARRATIVE: CASE EVENT DATE: 20240226
